FAERS Safety Report 11751077 (Version 1)
Quarter: 2015Q4

REPORT INFORMATION
  Report Type: Spontaneous
  Country: US (occurrence: US)
  Receive Date: 20151118
  Receipt Date: 20151118
  Transmission Date: 20160304
  Serious: No
  Sender: FDA-Public Use
  Company Number: US-NOVOPROD-448530

PATIENT
  Age: 52 Year
  Sex: Male
  Weight: 78.5 kg

DRUGS (1)
  1. NOVOLOG [Suspect]
     Active Substance: INSULIN ASPART
     Indication: TYPE 2 DIABETES MELLITUS
     Dosage: SLIDING SCALE, BID
     Route: 058
     Dates: start: 2012

REACTIONS (4)
  - Blood glucose increased [Recovered/Resolved]
  - Feeling cold [Recovered/Resolved]
  - Blood glucose decreased [Recovered/Resolved]
  - Medication error [Recovered/Resolved]

NARRATIVE: CASE EVENT DATE: 201503
